FAERS Safety Report 10048089 (Version 1)
Quarter: 2014Q1

REPORT INFORMATION
  Report Type: Spontaneous
  Country: US (occurrence: US)
  Receive Date: 20140331
  Receipt Date: 20140331
  Transmission Date: 20141002
  Serious: No
  Sender: FDA-Public Use
  Company Number: US-PFIZER INC-2014086561

PATIENT
  Sex: Female

DRUGS (3)
  1. ATIVAN [Suspect]
     Indication: ANXIETY
     Dosage: UNK
  2. LEVOXYL [Suspect]
     Indication: THYROID DISORDER
     Dosage: UNK
     Dates: start: 20140324
  3. LEVOTHYROXINE [Suspect]
     Indication: THYROID DISORDER
     Dosage: UNK

REACTIONS (2)
  - Myalgia [Unknown]
  - Tremor [Unknown]
